FAERS Safety Report 5484410-X (Version None)
Quarter: 2007Q4

REPORT INFORMATION
  Report Type: 
  Country: None (occurrence: None)
  Receive Date: 20071012
  Receipt Date: 20071004
  Transmission Date: 20080405
  Serious: Yes (Hospitalization, Other)
  Sender: FDA-Public Use
  Company Number: BE-ABBOTT-07P-013-0419638-00

PATIENT
  Sex: Female

DRUGS (11)
  1. HUMIRA [Suspect]
     Indication: RHEUMATOID ARTHRITIS
     Dates: start: 20050301
  2. LANOXIN [Suspect]
     Indication: ATRIAL FIBRILLATION
  3. LANOXIN [Suspect]
  4. CIPRALAN [Suspect]
     Indication: ATRIAL FIBRILLATION
     Dosage: 1/2 TABLET (UNIT DOSE)
  5. CIPRALAN [Suspect]
  6. NEBIVOLOL HCL [Suspect]
     Indication: ATRIAL FIBRILLATION
  7. NEBIVOLOL HCL [Suspect]
  8. PROPRANOLOL [Suspect]
     Indication: SINUS BRADYCARDIA
  9. PHENPROCOUMON [Concomitant]
     Indication: DRUG USE FOR UNKNOWN INDICATION
     Dosage: 1/4 TABLET (UNIT DOSE)
  10. LEFLUNOMIDE [Concomitant]
     Indication: RHEUMATOID ARTHRITIS
  11. PREDNISONE [Concomitant]
     Indication: RHEUMATOID ARTHRITIS

REACTIONS (17)
  - ADRENAL INSUFFICIENCY [None]
  - ANOREXIA [None]
  - ATRIAL FIBRILLATION [None]
  - C-REACTIVE PROTEIN INCREASED [None]
  - COAGULOPATHY [None]
  - COUGH [None]
  - DIABETIC NEPHROPATHY [None]
  - FATIGUE [None]
  - GENERAL PHYSICAL HEALTH DETERIORATION [None]
  - GENERALISED OEDEMA [None]
  - HAEMOPTYSIS [None]
  - HYPONATRAEMIA [None]
  - INFECTION [None]
  - LEUKOCYTOSIS [None]
  - MICROALBUMINURIA [None]
  - RENAL FAILURE ACUTE [None]
  - SINUS BRADYCARDIA [None]
